FAERS Safety Report 9688149 (Version 1)
Quarter: 2013Q4

REPORT INFORMATION
  Report Type: Spontaneous
  Country: US (occurrence: US)
  Receive Date: 20131114
  Receipt Date: 20131114
  Transmission Date: 20140711
  Serious: No
  Sender: FDA-Public Use
  Company Number: US-009507513-1311USA004417

PATIENT
  Sex: 0

DRUGS (1)
  1. JANUMET XR [Suspect]
     Dosage: TWO TABLETS ONCE A DAY
     Route: 048
     Dates: start: 20131001

REACTIONS (3)
  - Medication error [Unknown]
  - Product quality issue [Unknown]
  - No adverse event [Unknown]
